FAERS Safety Report 10078199 (Version 1)
Quarter: 2014Q2

REPORT INFORMATION
  Report Type: Spontaneous
  Country: US (occurrence: US)
  Receive Date: 20140415
  Receipt Date: 20140415
  Transmission Date: 20141212
  Serious: No
  Sender: FDA-Public Use
  Company Number: US-BIOGENIDEC-2014BI034196

PATIENT
  Age: 53 Year
  Sex: Female

DRUGS (8)
  1. AVONEX [Suspect]
     Indication: MULTIPLE SCLEROSIS
     Route: 030
     Dates: start: 20140216
  2. WARFARIN [Concomitant]
  3. VOLTARIN [Concomitant]
  4. OMEPRAZOLE [Concomitant]
  5. FLUOXETINE [Concomitant]
  6. MILK OF MAGNESIA [Concomitant]
  7. ACETAMINOPHEN [Concomitant]
  8. GABAPENTIN [Concomitant]

REACTIONS (1)
  - Burning sensation [Unknown]
